FAERS Safety Report 24531402 (Version 1)
Quarter: 2024Q4

REPORT INFORMATION
  Report Type: Report from Study
  Country: MX (occurrence: MX)
  Receive Date: 20241022
  Receipt Date: 20241022
  Transmission Date: 20250115
  Serious: No
  Sender: ROCHE
  Company Number: MX-ROCHE-3469569

PATIENT
  Sex: Female

DRUGS (1)
  1. PULMOZYME [Suspect]
     Active Substance: DORNASE ALFA
     Indication: Cystic fibrosis
     Route: 055
     Dates: start: 20160515

REACTIONS (4)
  - Hiatus hernia [Unknown]
  - Gastritis erosive [Unknown]
  - Duodenitis [Unknown]
  - Duodenal ulcer [Unknown]
